FAERS Safety Report 8833589 (Version 2)
Quarter: 2013Q1

REPORT INFORMATION
  Report Type: Spontaneous
  Country: JP (occurrence: JP)
  Receive Date: 20121010
  Receipt Date: 20130314
  Transmission Date: 20140127
  Serious: Yes (Hospitalization)
  Sender: FDA-Public Use
  Company Number: JP-ROCHE-1143467

PATIENT
  Age: 74 Year
  Sex: Male
  Weight: 62 kg

DRUGS (11)
  1. AVASTIN [Suspect]
     Indication: LUNG ADENOCARCINOMA METASTATIC
     Route: 041
     Dates: start: 20120509, end: 20120914
  2. SHAKUYAKU-KANZO-TO [Suspect]
     Indication: NEUROPATHY PERIPHERAL
     Route: 048
     Dates: start: 20120509, end: 20121002
  3. HERBALS [Suspect]
     Indication: NEUROPATHY PERIPHERAL
     Route: 048
     Dates: start: 20120509, end: 20121002
  4. NIFEDIPINE [Concomitant]
     Indication: HYPERTENSION
     Dosage: 2012/4 FORMER
     Route: 048
  5. DIART [Concomitant]
     Indication: HYPERTENSION
     Dosage: 2012/4 FORMER
     Route: 048
  6. LORFENAMIN [Concomitant]
     Indication: PAIN
     Route: 048
     Dates: start: 20120425, end: 20120902
  7. SELBEX [Concomitant]
     Indication: PAIN
     Route: 048
     Dates: start: 20120425, end: 20120902
  8. CARBOPLATIN [Concomitant]
     Indication: LUNG ADENOCARCINOMA METASTATIC
     Route: 041
     Dates: start: 20120509, end: 20120801
  9. TAXOL [Concomitant]
     Indication: LUNG ADENOCARCINOMA METASTATIC
     Route: 041
     Dates: start: 20120509, end: 20120801
  10. EMEND [Concomitant]
     Indication: NAUSEA
     Dosage: DAY1 125MG, DAY2,3 80MG
     Route: 048
     Dates: start: 20120509, end: 20120803
  11. RESTAMIN [Concomitant]
     Indication: PREMEDICATION
     Route: 048
     Dates: start: 20120509, end: 20120801

REACTIONS (1)
  - Eosinophilic pneumonia [Recovering/Resolving]
